FAERS Safety Report 5815285-4 (Version None)
Quarter: 2008Q3

REPORT INFORMATION
  Report Type: 
  Country: None (occurrence: None)
  Receive Date: 20080718
  Receipt Date: 20080707
  Transmission Date: 20090109
  Serious: Yes (Death, Hospitalization, Other)
  Sender: FDA-Public Use
  Company Number: FR-PFIZER INC-2008059008

PATIENT
  Sex: Male
  Weight: 50 kg

DRUGS (10)
  1. SU-011,248 [Suspect]
     Indication: HEAD AND NECK CANCER
     Route: 048
  2. NICOPATCH [Concomitant]
     Dates: start: 20080211, end: 20080608
  3. ACETAMINOPHEN AND CODEINE PHOSPHATE [Concomitant]
     Dates: start: 20080211, end: 20080608
  4. LASIX [Concomitant]
     Dates: start: 20080327, end: 20080608
  5. ZOPHREN [Concomitant]
     Dosage: DAILY DOSE:8MG
     Dates: start: 20080211, end: 20080608
  6. SOLUPRED [Concomitant]
     Dosage: DAILY DOSE:100MG
     Dates: start: 20080211, end: 20080608
  7. XANAX [Concomitant]
     Dosage: DAILY DOSE:.5MG
     Dates: start: 20080211, end: 20080608
  8. PRIMPERAN TAB [Concomitant]
     Dosage: DAILY DOSE:30MG
     Route: 048
     Dates: start: 20080211, end: 20080522
  9. METHYLPREDNISOLONE [Concomitant]
     Dosage: DAILY DOSE:120MG
     Route: 042
     Dates: start: 20080522, end: 20080526
  10. RAMIPRIL [Concomitant]
     Dosage: DAILY DOSE:1.25MG
     Route: 048
     Dates: start: 20080423, end: 20080526

REACTIONS (4)
  - GENERAL PHYSICAL HEALTH DETERIORATION [None]
  - HYPERCALCAEMIA [None]
  - HYPOPHOSPHATAEMIA [None]
  - TUMOUR HAEMORRHAGE [None]
